FAERS Safety Report 9062249 (Version 1)
Quarter: 2013Q1

REPORT INFORMATION
  Report Type: Spontaneous
  Country: FR (occurrence: FR)
  Receive Date: 20130129
  Receipt Date: 20130129
  Transmission Date: 20140127
  Serious: Yes (Other)
  Sender: FDA-Public Use
  Company Number: FR-ELI_LILLY_AND_COMPANY-FR201301008055

PATIENT
  Age: 49 Year
  Sex: Male

DRUGS (5)
  1. CIALIS [Suspect]
     Dosage: 1 DF, PRN
     Dates: start: 201103
  2. CIALIS [Suspect]
     Dosage: 5 MG, UNKNOWN
     Route: 048
     Dates: start: 201103
  3. CIALIS [Suspect]
     Dosage: 10 MG, UNKNOWN
  4. CIALIS [Suspect]
     Dosage: 20 MG, UNKNOWN
  5. CIALIS [Suspect]
     Dosage: 1 DF, PRN

REACTIONS (5)
  - Age-related macular degeneration [Not Recovered/Not Resolved]
  - Palpitations [Recovering/Resolving]
  - Headache [Recovering/Resolving]
  - Drug effect increased [Unknown]
  - Wrong technique in drug usage process [Recovered/Resolved]
